FAERS Safety Report 10250175 (Version 2)
Quarter: 2014Q3

REPORT INFORMATION
  Report Type: Spontaneous
  Country: US (occurrence: US)
  Receive Date: 20140620
  Receipt Date: 20140915
  Transmission Date: 20150326
  Serious: Yes (Hospitalization)
  Sender: FDA-Public Use
  Company Number: US-BRISTOL-MYERS SQUIBB COMPANY-20728234

PATIENT
  Age: 60 Year
  Sex: Male
  Weight: 111.11 kg

DRUGS (19)
  1. PANITUMUMAB [Concomitant]
     Active Substance: PANITUMUMAB
  2. POTASSIUM [Concomitant]
     Active Substance: POTASSIUM
  3. FENOFIBRATE. [Concomitant]
     Active Substance: FENOFIBRATE
     Dosage: 1 DF=160 UNIT NOS
  4. LISINOPRIL. [Concomitant]
     Active Substance: LISINOPRIL
  5. SPIRONOLACTONE. [Concomitant]
     Active Substance: SPIRONOLACTONE
  6. ROCEPHINE [Concomitant]
     Active Substance: CEFTRIAXONE SODIUM
  7. WARFARIN SODIUM. [Concomitant]
     Active Substance: WARFARIN SODIUM
  8. TRAZODONE HYDROCHLORIDE. [Concomitant]
     Active Substance: TRAZODONE HYDROCHLORIDE
  9. REVLIMID [Concomitant]
     Active Substance: LENALIDOMIDE
  10. ACYCLOVIR. [Concomitant]
     Active Substance: ACYCLOVIR
     Dosage: 1 DF=400 UNIT NOS
  11. METAXALONE. [Concomitant]
     Active Substance: METAXALONE
     Dosage: 1 DF=800 UNIT NOS
  12. CYCLOBENZAPRINE [Concomitant]
     Active Substance: CYCLOBENZAPRINE
  13. HYDROMORPHONE [Concomitant]
     Active Substance: HYDROMORPHONE
     Dosage: HYDROMORPHONE 4MG
  14. CLINDAMYCIN [Concomitant]
     Active Substance: CLINDAMYCIN\CLINDAMYCIN PHOSPHATE
  15. ELIQUIS [Suspect]
     Active Substance: APIXABAN
     Indication: CEREBROVASCULAR ACCIDENT PROPHYLAXIS
     Dates: start: 20140425, end: 20140503
  16. VERAPAMIL [Concomitant]
     Active Substance: VERAPAMIL HYDROCHLORIDE
  17. LOVASTATIN. [Concomitant]
     Active Substance: LOVASTATIN
  18. NOVOLOG [Concomitant]
     Active Substance: INSULIN ASPART
  19. LANTUS [Concomitant]
     Active Substance: INSULIN GLARGINE
     Dosage: 1 DF=40 UNITS NOS

REACTIONS (1)
  - Deep vein thrombosis [Unknown]

NARRATIVE: CASE EVENT DATE: 20140502
